FAERS Safety Report 12009443 (Version 1)
Quarter: 2016Q1

REPORT INFORMATION
  Report Type: Spontaneous
  Country: US (occurrence: US)
  Receive Date: 20160205
  Receipt Date: 20160205
  Transmission Date: 20160526
  Serious: No
  Sender: FDA-Public Use
  Company Number: PHEH2016US002640

PATIENT
  Age: 61 Year
  Sex: Male

DRUGS (1)
  1. MEKINIST [Suspect]
     Active Substance: TRAMETINIB DIMETHYL SULFOXIDE
     Indication: METASTATIC NEOPLASM
     Dosage: 02 MG, QD
     Route: 048
     Dates: start: 20140121

REACTIONS (3)
  - Scratch [Unknown]
  - Pruritus [Unknown]
  - Haemorrhage [Unknown]

NARRATIVE: CASE EVENT DATE: 201601
